FAERS Safety Report 5408260-5 (Version None)
Quarter: 2007Q3

REPORT INFORMATION
  Report Type: 
  Country: None (occurrence: None)
  Receive Date: 20070808
  Receipt Date: 20070807
  Transmission Date: 20080115
  Serious: Yes (Hospitalization)
  Sender: FDA-Public Use
  Company Number: US-RB-007622-07

PATIENT
  Sex: Female

DRUGS (5)
  1. SUBOXONE [Suspect]
     Dosage: RSM STOPPED TAKING SUBOXONE FOR A COUPLE DAYS IN THE BEGINNING OF AUGUST 2007. THEN RESTARTED AGAIN.
     Route: 060
     Dates: start: 20070401
  2. PHENERGAN HCL [Concomitant]
     Indication: NAUSEA
     Dosage: DOSE UNKNOWN
     Route: 048
  3. PROZAC [Concomitant]
     Indication: PANIC DISORDER
     Dosage: DOSE UNKNOWN
     Route: 048
  4. REGLAN [Concomitant]
     Dosage: DOSE UNKNOWN
     Route: 048
  5. HYDROCODONE BITARTRATE [Concomitant]
     Indication: DRUG USE FOR UNKNOWN INDICATION
     Dosage: DOSE UNKNOWN
     Route: 048

REACTIONS (6)
  - AMNESIA [None]
  - DRUG EXPOSURE DURING PREGNANCY [None]
  - HALLUCINATION [None]
  - INSOMNIA [None]
  - RESPIRATORY DISTRESS [None]
  - VOMITING [None]
